FAERS Safety Report 7628609-2 (Version None)
Quarter: 2011Q3

REPORT INFORMATION
  Report Type: 
  Country: None (occurrence: None)
  Receive Date: 20110722
  Receipt Date: 20110202
  Transmission Date: 20111222
  Serious: No
  Sender: FDA-Public Use
  Company Number: US-BAYER-2011-015387

PATIENT
  Sex: Female
  Weight: 59 kg

DRUGS (2)
  1. AMPYRA [Concomitant]
     Dosage: 10 MG, UNK
  2. BETASERON [Suspect]
     Indication: PRODUCT USED FOR UNKNOWN INDICATION
     Dosage: 0.25 MG, QOD
     Route: 058

REACTIONS (3)
  - RHINORRHOEA [None]
  - NASAL CONGESTION [None]
  - RHINALGIA [None]
